FAERS Safety Report 6731328-8 (Version None)
Quarter: 2010Q2

REPORT INFORMATION
  Report Type: 
  Country: None (occurrence: None)
  Receive Date: 20100517
  Receipt Date: 20100517
  Transmission Date: 20101027
  Serious: Yes (Other)
  Sender: FDA-Public Use
  Company Number: None

PATIENT
  Age: 43 Year
  Sex: Female
  Weight: 83.9154 kg

DRUGS (4)
  1. ORTHO EVRA [Suspect]
     Indication: CONTRACEPTION
     Dosage: 1 PATCH 1X A WK FOR 3 WKS TRANSDERMAL
     Route: 062
     Dates: start: 20050401, end: 20051001
  2. ORTHO EVRA [Suspect]
     Indication: MENORRHAGIA
     Dosage: 1 PATCH 1X A WK FOR 3 WKS TRANSDERMAL
     Route: 062
     Dates: start: 20050401, end: 20051001
  3. ORTHO EVRA [Suspect]
     Indication: CONTRACEPTION
     Dosage: 1 PATCH 1X A WK FOR 3 WKS TRANSDERMAL
     Route: 062
     Dates: start: 20100205, end: 20100515
  4. ORTHO EVRA [Suspect]
     Indication: MENORRHAGIA
     Dosage: 1 PATCH 1X A WK FOR 3 WKS TRANSDERMAL
     Route: 062
     Dates: start: 20100205, end: 20100515

REACTIONS (2)
  - PHOTOPSIA [None]
  - VISUAL IMPAIRMENT [None]
